FAERS Safety Report 10085712 (Version 1)
Quarter: 2014Q2

REPORT INFORMATION
  Report Type: Spontaneous
  Country: US (occurrence: None)
  Receive Date: 20140416
  Receipt Date: 20140416
  Transmission Date: 20141212
  Serious: Yes (Other)
  Sender: FDA-Public Use
  Company Number: AUR-APL-2014-04345

PATIENT
  Sex: 0

DRUGS (1)
  1. TRIMETHOPRIM+SULFAMETHOXAZOLE (TRIMETHOPRIM, SULFAMETHOXAZOLE) [Suspect]
     Indication: PRODUCT USED FOR UNKNOWN INDICATION

REACTIONS (4)
  - Asthenia [None]
  - Fatigue [None]
  - Vertigo [None]
  - Nephrolithiasis [None]
